FAERS Safety Report 17173961 (Version 1)
Quarter: 2019Q4

REPORT INFORMATION
  Report Type: Spontaneous
  Country: CA (occurrence: CA)
  Receive Date: 20191219
  Receipt Date: 20191219
  Transmission Date: 20200122
  Serious: Yes (Death)
  Sender: FDA-Public Use
  Company Number: CA-ROCHE-2500920

PATIENT
  Age: 60 Year
  Sex: Female
  Weight: 66 kg

DRUGS (14)
  1. CLONAZEPAM. [Suspect]
     Active Substance: CLONAZEPAM
     Indication: PRODUCT USED FOR UNKNOWN INDICATION
     Route: 048
  2. CODEINE [Suspect]
     Active Substance: CODEINE
     Indication: PRODUCT USED FOR UNKNOWN INDICATION
     Route: 065
  3. OXYCODONE [Concomitant]
     Active Substance: OXYCODONE
  4. VALSARTAN. [Concomitant]
     Active Substance: VALSARTAN
  5. CELECOXIB. [Suspect]
     Active Substance: CELECOXIB
     Indication: PRODUCT USED FOR UNKNOWN INDICATION
     Route: 065
  6. TRIAMCINOLONE [Concomitant]
     Active Substance: TRIAMCINOLONE
  7. DOMPERIDONE [Concomitant]
     Active Substance: DOMPERIDONE
  8. LEVOMEPROMAZINE MALEATE [Concomitant]
     Active Substance: LEVOMEPROMAZINE MALEATE
  9. LIPITOR [Concomitant]
     Active Substance: ATORVASTATIN CALCIUM
  10. AVAPRO [Concomitant]
     Active Substance: IRBESARTAN
  11. PROPRANOLOL HYDROCHLORIDE. [Concomitant]
     Active Substance: PROPRANOLOL HYDROCHLORIDE
  12. MORPHINE SULFATE. [Suspect]
     Active Substance: MORPHINE SULFATE
     Indication: PRODUCT USED FOR UNKNOWN INDICATION
     Route: 065
  13. PENNSAID [Concomitant]
     Active Substance: DICLOFENAC SODIUM
     Route: 065
  14. DIPHENHYDRAMINE. [Suspect]
     Active Substance: DIPHENHYDRAMINE
     Indication: PRODUCT USED FOR UNKNOWN INDICATION
     Route: 065

REACTIONS (2)
  - Drug dependence [Fatal]
  - Accidental overdose [Fatal]
